FAERS Safety Report 10389537 (Version 3)
Quarter: 2014Q4

REPORT INFORMATION
  Report Type: Report from Study
  Country: FR (occurrence: FR)
  Receive Date: 20140818
  Receipt Date: 20141103
  Transmission Date: 20150528
  Serious: Yes (Death, Hospitalization)
  Sender: FDA-Public Use
  Company Number: FR-BRISTOL-MYERS SQUIBB COMPANY-21304043

PATIENT
  Age: 79 Year
  Sex: Male

DRUGS (5)
  1. CETUXIMAB [Suspect]
     Active Substance: CETUXIMAB
     Indication: SQUAMOUS CELL CARCINOMA
     Dosage: 09APR14-09APR14:400MG/M2.?15APR14:250MG/M2?09JUL14-23JUL14:480MG
     Route: 042
     Dates: start: 20140409
  2. FLUOROURACIL. [Suspect]
     Active Substance: FLUOROURACIL
     Indication: SQUAMOUS CELL CARCINOMA
     Dosage: 09APR14-09APR14:1900MG?30APR14-03MAY14:1900MG?09JUL14-12JUL14:1900MG
     Route: 042
     Dates: start: 20140409
  3. CARBOPLATIN. [Suspect]
     Active Substance: CARBOPLATIN
     Indication: SQUAMOUS CELL CARCINOMA
     Dosage: 09APR14-09APR14:400MG?30APR14-30APR14:400MG?30JUL14:426MG5TH CYCLE
     Route: 042
     Dates: start: 20140409
  4. CLAVULANIC ACID [Concomitant]
     Active Substance: CLAVULANIC ACID
     Indication: INFECTION
  5. AMOXICILLIN. [Concomitant]
     Active Substance: AMOXICILLIN
     Indication: INFECTION

REACTIONS (4)
  - Confusional state [Fatal]
  - Dehydration [Fatal]
  - General physical health deterioration [Fatal]
  - Hypernatraemia [Fatal]

NARRATIVE: CASE EVENT DATE: 20140731
